FAERS Safety Report 7372742-X (Version None)
Quarter: 2011Q1

REPORT INFORMATION
  Report Type: 
  Country: None (occurrence: None)
  Receive Date: 20110316
  Receipt Date: 20110301
  Transmission Date: 20110831
  Serious: Yes (Hospitalization)
  Sender: FDA-Public Use
  Company Number: IDA-00506

PATIENT
  Age: 77 Year
  Sex: Female

DRUGS (5)
  1. DIGOXIN [Suspect]
     Indication: ATRIAL FIBRILLATION
     Dosage: .5 MG DAILY/.25 MG DAILY
     Route: 042
     Dates: start: 20081125, end: 20081125
  2. DIGOXIN [Suspect]
     Indication: ATRIAL FIBRILLATION
     Dosage: .5 MG DAILY/.25 MG DAILY
     Route: 042
     Dates: start: 20081125, end: 20081128
  3. PROPRANOLOL [Suspect]
     Indication: ATRIAL FIBRILLATION
     Dosage: 5 MG DAILY
     Route: 042
     Dates: start: 20081125, end: 20081125
  4. TRANGOREX (AMIODARONE HYDROCHLORIDE) STRENGTH 200MG [Suspect]
     Indication: ATRIAL FIBRILLATION
     Dosage: 150 MG DAILY
     Route: 048
     Dates: end: 20081124
  5. EMCONCOR (BISOPROLOL) STRENGTH 10 MG [Suspect]
     Indication: ATRIAL FIBRILLATION
     Dosage: 10 MG DAILY
     Route: 048
     Dates: start: 20081125, end: 20081125

REACTIONS (3)
  - NODAL RHYTHM [None]
  - TOXICITY TO VARIOUS AGENTS [None]
  - DRUG INTERACTION [None]
